FAERS Safety Report 24275319 (Version 1)
Quarter: 2024Q3

REPORT INFORMATION
  Report Type: Spontaneous
  Country: US (occurrence: US)
  Receive Date: 20240903
  Receipt Date: 20240903
  Transmission Date: 20241017
  Serious: Yes (Hospitalization, Other)
  Sender: AUROBINDO
  Company Number: US-AUROBINDO-AUR-APL-2024-042330

PATIENT
  Age: 39 Year
  Sex: Male

DRUGS (6)
  1. HYDROCORTISONE [Suspect]
     Active Substance: HYDROCORTISONE\HYDROCORTISONE ACETATE
     Indication: Asthmatic crisis
     Dosage: 200 MILLIGRAM
     Route: 042
  2. METHYLPREDNISOLONE [Suspect]
     Active Substance: METHYLPREDNISOLONE
     Indication: Asthmatic crisis
     Dosage: 40 MILLIGRAM, 3 TIMES A DAY
     Route: 042
  3. AMBROXOL ACEFYLLINATE [Suspect]
     Active Substance: AMBROXOL ACEFYLLINATE
     Indication: Asthmatic crisis
     Dosage: 100 MILLIGRAM, TWO TIMES A DAY
     Route: 048
  4. LEVALBUTEROL [Suspect]
     Active Substance: LEVALBUTEROL
     Indication: Asthmatic crisis
     Dosage: 0.63 MILLIGRAM (TWO DOSES)
  5. MAGNESIUM SULFATE [Suspect]
     Active Substance: MAGNESIUM SULFATE\MAGNESIUM SULFATE HEPTAHYDRATE
     Indication: Asthmatic crisis
     Dosage: 2 GRAM, 2G IN 100ML OF SODIUMCHLORIDE [NORMAL SALINE] OVER 30MIN.
     Route: 042
  6. CEFTRIAXONE [Concomitant]
     Active Substance: CEFTRIAXONE\CEFTRIAXONE SODIUM
     Indication: Antibiotic therapy
     Dosage: UNK
     Route: 065

REACTIONS (1)
  - Drug ineffective [Unknown]
